FAERS Safety Report 25412249 (Version 5)
Quarter: 2025Q4

REPORT INFORMATION
  Report Type: Report from Study
  Country: US (occurrence: US)
  Receive Date: 20250609
  Receipt Date: 20251208
  Transmission Date: 20260118
  Serious: No
  Sender: MALLINCKRODT
  Company Number: US-MALLINCKRODT-MNK202502712

PATIENT
  Age: 60 Year
  Sex: Female

DRUGS (3)
  1. CORTICOTROPIN [Suspect]
     Active Substance: CORTICOTROPIN
     Indication: Nephrotic syndrome
     Dates: start: 2022
  2. CORTICOTROPIN [Suspect]
     Active Substance: CORTICOTROPIN
     Indication: Nephrotic syndrome
  3. CALCIUM [Concomitant]
     Active Substance: CALCIUM
     Dosage: UNKNOWN

REACTIONS (5)
  - Protein urine present [Unknown]
  - Thyroid function test abnormal [Unknown]
  - Blood glucose increased [Unknown]
  - Headache [Unknown]
  - Hypertension [Recovering/Resolving]

NARRATIVE: CASE EVENT DATE: 20250406
